FAERS Safety Report 15821279 (Version 2)
Quarter: 2019Q1

REPORT INFORMATION
  Report Type: Spontaneous
  Country: NL (occurrence: NL)
  Receive Date: 20190114
  Receipt Date: 20190219
  Transmission Date: 20190417
  Serious: Yes (Death, Hospitalization)
  Sender: FDA-Public Use
  Company Number: NL-TERSERA THERAPEUTICS LLC-TSR2017000571

PATIENT

DRUGS (7)
  1. ZOLADEX [Suspect]
     Active Substance: GOSERELIN ACETATE
     Dosage: 10.8 MG, 1.00 X PER 3 MONTHS
     Route: 058
     Dates: start: 20160506
  2. ZOLADEX [Suspect]
     Active Substance: GOSERELIN ACETATE
     Dosage: 10.8 MG, 1.00 X PER 3 MONTHS
     Route: 058
     Dates: start: 20160211
  3. ZOLADEX [Suspect]
     Active Substance: GOSERELIN ACETATE
     Dosage: 10.8 MG, 1.00 X PER 3 MONTHS
     Route: 058
     Dates: start: 20171005
  4. ZOLADEX [Suspect]
     Active Substance: GOSERELIN ACETATE
     Dosage: 10.8 MG, 1.00 X PER 3 MONTHS
     Route: 058
     Dates: start: 20180710
  5. ZOLADEX [Suspect]
     Active Substance: GOSERELIN ACETATE
     Indication: PROSTATE CANCER
     Dosage: 10.8 MG, 1.00 X PER 3 MONTHS
     Route: 058
     Dates: start: 20140224
  6. ZOLADEX [Suspect]
     Active Substance: GOSERELIN ACETATE
     Dosage: 10.8 MG, 1.00 X PER 3 MONTHS
     Route: 058
     Dates: start: 20181008
  7. ZOLADEX [Suspect]
     Active Substance: GOSERELIN ACETATE
     Dosage: 10.8 MG, 1.00 X PER 3 MONTHS
     Route: 058
     Dates: start: 20170629

REACTIONS (3)
  - Pancreatic carcinoma [Unknown]
  - Death [Fatal]
  - Hot flush [Unknown]

NARRATIVE: CASE EVENT DATE: 20160302
